FAERS Safety Report 8786855 (Version 1)
Quarter: 2012Q4

REPORT INFORMATION
  Report Type: 
  Country: US (occurrence: US)
  Receive Date: 20120914
  Receipt Date: 20120914
  Transmission Date: 20130627
  Serious: No
  Sender: FDA-Public Use
  Company Number: US-VERTEX PHARMACEUTICAL INC.-AE-2012-011274

PATIENT
  Age: 33 Year
  Sex: Female
  Weight: 81.82 kg

DRUGS (8)
  1. INCIVEK [Suspect]
     Indication: HEPATITIS C
     Route: 048
     Dates: start: 20120719
  2. RIBASPHERE [Concomitant]
     Indication: HEPATITIS C
     Route: 048
     Dates: start: 20120719
  3. PEGASYS [Concomitant]
     Indication: HEPATITIS C
     Route: 058
     Dates: start: 20120719
  4. PHENOBARBITAL [Concomitant]
     Indication: ANXIETY
     Route: 048
  5. PHENOBARBITAL [Concomitant]
     Indication: EPILEPSY
  6. KEPPRA [Concomitant]
     Indication: EPILEPSY
     Route: 048
  7. ZINNAT [Concomitant]
     Indication: SINUSITIS
     Route: 048
  8. TOPAMAX [Concomitant]
     Indication: EPILEPSY
     Route: 048

REACTIONS (1)
  - Diarrhoea [Not Recovered/Not Resolved]
